FAERS Safety Report 19948068 (Version 2)
Quarter: 2021Q4

REPORT INFORMATION
  Report Type: Spontaneous
  Country: US (occurrence: US)
  Receive Date: 20211012
  Receipt Date: 20211026
  Transmission Date: 20220303
  Serious: No
  Sender: FDA-Public Use
  Company Number: US-BRISTOL-MYERS SQUIBB COMPANY-BMS-2021-092702

PATIENT
  Age: 83 Year
  Sex: Female
  Weight: 85.73 kg

DRUGS (1)
  1. ELIQUIS [Suspect]
     Active Substance: APIXABAN
     Indication: Cerebrovascular accident prophylaxis
     Dosage: 5 MILLIGRAM, BID
     Route: 048

REACTIONS (3)
  - Product packaging quantity issue [Unknown]
  - Malaise [Unknown]
  - Product label issue [Unknown]

NARRATIVE: CASE EVENT DATE: 20210826
